FAERS Safety Report 25589324 (Version 2)
Quarter: 2025Q3

REPORT INFORMATION
  Report Type: Report from Study
  Country: CA (occurrence: CA)
  Receive Date: 20250722
  Receipt Date: 20250811
  Transmission Date: 20251021
  Serious: Yes (Death, Other)
  Sender: ABBVIE
  Company Number: CA-ABBVIE-6378663

PATIENT
  Age: 65 Year
  Sex: Male

DRUGS (1)
  1. RINVOQ [Suspect]
     Active Substance: UPADACITINIB
     Indication: Rheumatoid arthritis
     Dosage: FROM STRENGTH 15 MILLIGRAM
     Route: 048

REACTIONS (5)
  - Bone cancer [Fatal]
  - Brain neoplasm malignant [Fatal]
  - Lung neoplasm malignant [Fatal]
  - Neoplasm malignant [Fatal]
  - Renal cancer [Fatal]

NARRATIVE: CASE EVENT DATE: 20250615
